FAERS Safety Report 8343670-8 (Version None)
Quarter: 2012Q2

REPORT INFORMATION
  Report Type: 
  Country: None (occurrence: None)
  Receive Date: 20120503
  Receipt Date: 20120503
  Transmission Date: 20120825
  Serious: Yes (Hospitalization)
  Sender: FDA-Public Use
  Company Number: None

PATIENT
  Sex: Male
  Weight: 88 kg

DRUGS (4)
  1. IRINOTECAN HCL [Concomitant]
     Dosage: 1134 MG
     Dates: end: 20120417
  2. LEUCOVORIN CALCIUM [Suspect]
     Dosage: 2520 MG
     Dates: end: 20120417
  3. FLUOROURACIL [Suspect]
     Dosage: 17640 MG
     Dates: end: 20120417
  4. BEVACIZUMAB (RHUMAB VEGF) [Suspect]
     Dosage: 1305 MG
     Dates: end: 20120417

REACTIONS (3)
  - VOMITING [None]
  - NAUSEA [None]
  - DIARRHOEA [None]
